FAERS Safety Report 23211341 (Version 1)
Quarter: 2023Q4

REPORT INFORMATION
  Report Type: Spontaneous
  Country: EC (occurrence: EC)
  Receive Date: 20231121
  Receipt Date: 20231121
  Transmission Date: 20240110
  Serious: Yes (Other)
  Sender: FDA-Public Use
  Company Number: EC-PFIZER INC-PV202300187904

PATIENT
  Age: 7 Year
  Sex: Female

DRUGS (1)
  1. SOMATROPIN [Suspect]
     Active Substance: SOMATROPIN
     Dosage: UNK
     Route: 058
     Dates: start: 2021

REACTIONS (6)
  - Autism spectrum disorder [Unknown]
  - Epilepsy [Unknown]
  - Intentional self-injury [Unknown]
  - Aggression [Unknown]
  - Screaming [Unknown]
  - Emotional disorder [Unknown]

NARRATIVE: CASE EVENT DATE: 20231001
